FAERS Safety Report 9197060 (Version 1)
Quarter: 2013Q1

REPORT INFORMATION
  Report Type: Spontaneous
  Country: FR (occurrence: FR)
  Receive Date: 20130328
  Receipt Date: 20130328
  Transmission Date: 20140127
  Serious: Yes (Life-Threatening, Hospitalization, Other)
  Sender: FDA-Public Use
  Company Number: FR-BAYER-2013-034074

PATIENT
  Age: 65 Year
  Sex: Male

DRUGS (4)
  1. CIFLOX [Suspect]
     Dosage: UNK
     Dates: start: 20130124, end: 20130128
  2. ROCEPHINE [Suspect]
     Indication: ARTHRITIS INFECTIVE
     Dosage: 2 G, BID
     Route: 042
     Dates: start: 20121204, end: 20130116
  3. VANCOMYCIN [Suspect]
     Dosage: UNK
     Route: 042
     Dates: start: 20130124, end: 20130128
  4. NOZINAN [Concomitant]
     Dosage: 20 GTT, QD
     Route: 048
     Dates: start: 20121129, end: 20130116

REACTIONS (1)
  - Drug reaction with eosinophilia and systemic symptoms [Recovered/Resolved with Sequelae]
